FAERS Safety Report 5811068-X (Version None)
Quarter: 2008Q3

REPORT INFORMATION
  Report Type: 
  Country: None (occurrence: None)
  Receive Date: 20080716
  Receipt Date: 20080703
  Transmission Date: 20090109
  Serious: Yes (Hospitalization)
  Sender: FDA-Public Use
  Company Number: US-KINGPHARMUSA00001-K200800776

PATIENT

DRUGS (3)
  1. ALTACE [Suspect]
     Indication: HYPERTENSION
     Route: 048
  2. CORTISON [Concomitant]
     Indication: GLOMERULONEPHRITIS
     Dosage: 4 MG, UNK
     Route: 048
  3. CORTISON [Concomitant]
     Indication: NEPHROTIC SYNDROME

REACTIONS (5)
  - CHOROIDAL EFFUSION [None]
  - EYE PAIN [None]
  - INTRAOCULAR PRESSURE INCREASED [None]
  - RETINAL DETACHMENT [None]
  - VISUAL ACUITY REDUCED [None]
